FAERS Safety Report 15401425 (Version 1)
Quarter: 2018Q3

REPORT INFORMATION
  Report Type: Spontaneous
  Country: US (occurrence: US)
  Receive Date: 20180914
  Receipt Date: 20180914
  Transmission Date: 20181010
  Serious: No
  Sender: FDA-Public Use
  Company Number: None

PATIENT
  Age: 34 Year
  Sex: Female
  Weight: 70.3 kg

DRUGS (1)
  1. GAMMAPLEX [Suspect]
     Active Substance: HUMAN IMMUNOGLOBULIN G
     Indication: IMMUNODEFICIENCY COMMON VARIABLE
     Dosage: ?          OTHER FREQUENCY:Q4WK;?
     Route: 042
     Dates: start: 20180905

REACTIONS (6)
  - Pain in jaw [None]
  - Back pain [None]
  - Infusion related reaction [None]
  - Chest pain [None]
  - Underdose [None]
  - Pain in extremity [None]

NARRATIVE: CASE EVENT DATE: 20180905
